FAERS Safety Report 8451194-2 (Version None)
Quarter: 2012Q2

REPORT INFORMATION
  Report Type: 
  Country: None (occurrence: None)
  Receive Date: 20120620
  Receipt Date: 20120316
  Transmission Date: 20120825
  Serious: No
  Sender: FDA-Public Use
  Company Number: US-VERTEX PHARMACEUTICALS INC.-AE-2011-004058

PATIENT
  Sex: Male
  Weight: 89.438 kg

DRUGS (6)
  1. RIBAVIRIN [Concomitant]
     Indication: HEPATITIS C
     Route: 048
     Dates: start: 20111101
  2. INCIVEK [Suspect]
     Indication: HEPATITIS C
     Route: 048
     Dates: start: 20111101
  3. PEGASYS [Concomitant]
     Indication: HEPATITIS C
     Dates: start: 20111101
  4. VITAMIN D [Concomitant]
  5. LISINOPRIL [Concomitant]
     Indication: HYPERTENSION
     Route: 048
  6. CALCIUM [Concomitant]

REACTIONS (2)
  - PRURITUS GENERALISED [None]
  - SKIN EXFOLIATION [None]
